FAERS Safety Report 18920191 (Version 1)
Quarter: 2021Q1

REPORT INFORMATION
  Report Type: Spontaneous
  Country: PT (occurrence: PT)
  Receive Date: 20210222
  Receipt Date: 20210222
  Transmission Date: 20210420
  Serious: Yes (Other)
  Sender: FDA-Public Use
  Company Number: PT-AUROBINDO-AUR-APL-2021-007376

PATIENT
  Age: 75 Year
  Sex: Female

DRUGS (3)
  1. GENTAMICINA [Concomitant]
     Active Substance: GENTAMICIN
     Indication: ENDOCARDITIS
     Dosage: UNK
     Route: 065
  2. VANCOMYCIN [Suspect]
     Active Substance: VANCOMYCIN
     Indication: ENDOCARDITIS
     Dosage: UNK
     Route: 065
  3. RIFAMPICINA [Concomitant]
     Active Substance: RIFAMPIN
     Indication: ENDOCARDITIS
     Dosage: UNK
     Route: 065

REACTIONS (1)
  - Drug ineffective [Unknown]
